FAERS Safety Report 14314769 (Version 1)
Quarter: 2017Q4

REPORT INFORMATION
  Report Type: Spontaneous
  Country: US (occurrence: US)
  Receive Date: 20171221
  Receipt Date: 20171221
  Transmission Date: 20180321
  Serious: Yes (Death, Hospitalization)
  Sender: FDA-Public Use
  Company Number: US-ALLERGAN-1772768US

PATIENT
  Age: 83 Year
  Sex: Female

DRUGS (1)
  1. BOTULINUM TOXIN TYPE A UNK [Suspect]
     Active Substance: BOTULINUM TOXIN TYPE A
     Indication: OESOPHAGEAL ACHALASIA
     Dosage: UNK UNK, SINGLE
     Route: 030

REACTIONS (6)
  - Liver disorder [Fatal]
  - Atrial fibrillation [Fatal]
  - Musculoskeletal pain [Unknown]
  - Off label use [Unknown]
  - Septic shock [Fatal]
  - Pleural effusion [Fatal]
